FAERS Safety Report 9482633 (Version 2)
Quarter: 2013Q3

REPORT INFORMATION
  Report Type: Report from Study
  Country: None (occurrence: DE)
  Receive Date: 20130828
  Receipt Date: 20130828
  Transmission Date: 20140515
  Serious: Yes (Other)
  Sender: FDA-Public Use
  Company Number: DE-TEVA-417105GER

PATIENT
  Sex: Female
  Weight: 75 kg

DRUGS (4)
  1. COPAXONE [Suspect]
     Indication: MULTIPLE SCLEROSIS
     Route: 058
     Dates: end: 201306
  2. COPAXONE [Interacting]
     Dates: start: 201307
  3. AMITRIPTYLINE [Interacting]
     Indication: PAIN
     Dosage: 10 MILLIGRAM DAILY;
     Route: 048
     Dates: start: 201202
  4. SIRDALUD [Interacting]
     Indication: MUSCLE SPASTICITY
     Dosage: 6 MILLIGRAM DAILY;
     Route: 048
     Dates: start: 201202

REACTIONS (2)
  - Hepatic enzyme increased [Recovered/Resolved]
  - Drug interaction [Recovered/Resolved]
